FAERS Safety Report 9571463 (Version 1)
Quarter: 2013Q3

REPORT INFORMATION
  Report Type: Spontaneous
  Country: FR (occurrence: None)
  Receive Date: 20130927
  Receipt Date: 20130927
  Transmission Date: 20140515
  Serious: Yes (Hospitalization)
  Sender: FDA-Public Use
  Company Number: DSM-2013-00878

PATIENT
  Age: 92 Year
  Sex: Female

DRUGS (4)
  1. SEVIKAR [Suspect]
     Indication: HYPERTENSION
     Dosage: 1 DOSAGE FROM (1 DOSAGE FORMS, 1 IN 1 D), ORAL
     Route: 048
     Dates: start: 20121002, end: 20121003
  2. ATACAND [Suspect]
     Dosage: 1 DOSAGE FROM (1 DOSAGE FORMS, 1 IN 1 D), ORAL
     Route: 048
     Dates: end: 20121003
  3. FLUDEX (INDAPAMIDE) (1.5 MILLIGRAM, PROLONGED-RELEASE TABLE) (INDAPAMIDE) [Concomitant]
     Route: 048
     Dates: end: 20121003
  4. KERLONE [Suspect]
     Route: 048

REACTIONS (3)
  - Hyponatraemia [None]
  - Confusional state [None]
  - Aphasia [None]
